FAERS Safety Report 17269711 (Version 1)
Quarter: 2020Q1

REPORT INFORMATION
  Report Type: Spontaneous
  Country: US (occurrence: US)
  Receive Date: 20200114
  Receipt Date: 20200114
  Transmission Date: 20200409
  Serious: Yes (Other)
  Sender: FDA-Public Use
  Company Number: US-BAYER-2020-003159

PATIENT
  Age: 76 Year
  Sex: Female
  Weight: 83.9 kg

DRUGS (3)
  1. BAYER LOW DOSE [Suspect]
     Active Substance: ASPIRIN
     Dosage: 81 MG, QD
     Route: 048
  2. CHOLESTEROL CARE [Concomitant]
  3. OMEGA-3 FISH OIL [Suspect]
     Active Substance: FISH OIL\OMEGA-3 FATTY ACIDS
     Dosage: 1000 MG, QD
     Route: 048
     Dates: start: 2010, end: 2019

REACTIONS (2)
  - Product use issue [None]
  - Epistaxis [None]

NARRATIVE: CASE EVENT DATE: 2019
